FAERS Safety Report 16172603 (Version 3)
Quarter: 2019Q2

REPORT INFORMATION
  Report Type: Spontaneous
  Country: DE (occurrence: DE)
  Receive Date: 20190409
  Receipt Date: 20190506
  Transmission Date: 20190711
  Serious: Yes (Hospitalization)
  Sender: FDA-Public Use
  Company Number: US-ORPHAN EUROPE-2065518

PATIENT
  Age: 14 Year
  Sex: Female
  Weight: 77 kg

DRUGS (6)
  1. L THYROXIN [Concomitant]
     Active Substance: LEVOTHYROXINE SODIUM
  2. L CARNITINE [Concomitant]
     Active Substance: LEVOCARNITINE
  3. SODIUM CITRATE. [Concomitant]
     Active Substance: SODIUM CITRATE
  4. ZINC. [Concomitant]
     Active Substance: ZINC
  5. CARBAGLU [Suspect]
     Active Substance: CARGLUMIC ACID
     Indication: HYPERGLYCINAEMIA
     Route: 048
     Dates: start: 20180115, end: 20180227
  6. SODIUM BENZOATE [Concomitant]
     Active Substance: SODIUM BENZOATE

REACTIONS (15)
  - Asthenia [Unknown]
  - Dysphagia [Unknown]
  - Areflexia [Unknown]
  - Polyneuropathy [Unknown]
  - Malaise [Unknown]
  - Nausea [Unknown]
  - Neuropathy peripheral [Unknown]
  - Dizziness [Unknown]
  - Blood lactate dehydrogenase increased [Unknown]
  - Pain in extremity [Unknown]
  - Dysstasia [Unknown]
  - Transaminases increased [Unknown]
  - General physical health deterioration [Unknown]
  - Blood lactic acid increased [Unknown]
  - Vomiting [Unknown]

NARRATIVE: CASE EVENT DATE: 20180208
